FAERS Safety Report 7204573-5 (Version None)
Quarter: 2010Q4

REPORT INFORMATION
  Report Type: 
  Country: None (occurrence: None)
  Receive Date: 20101230
  Receipt Date: 20101223
  Transmission Date: 20110411
  Serious: Yes (Hospitalization)
  Sender: FDA-Public Use
  Company Number: PHHO2010US19583

PATIENT
  Sex: Female
  Weight: 29.025 kg

DRUGS (10)
  1. AFINITOR [Suspect]
     Indication: COLORECTAL CANCER METASTATIC
     Dosage: 10 MG, QD
     Route: 048
     Dates: start: 20100903, end: 20101221
  2. AMLODIPINE [Concomitant]
  3. COMPAZINE [Concomitant]
  4. COUMADIN [Concomitant]
  5. DILAUDID [Concomitant]
  6. FERROUS SULFATE [Concomitant]
  7. HYDROCHLOROTHIAZIDE [Concomitant]
  8. K-PHOS NEUTRAL [Concomitant]
  9. MIRALAX [Concomitant]
  10. MULTI-VITAMINS [Concomitant]

REACTIONS (2)
  - PNEUMOTHORAX [None]
  - TUMOUR RUPTURE [None]
